APPROVED DRUG PRODUCT: DULOXETINE HYDROCHLORIDE
Active Ingredient: DULOXETINE HYDROCHLORIDE
Strength: EQ 60MG BASE
Dosage Form/Route: CAPSULE, DELAYED REL PELLETS;ORAL
Application: A202949 | Product #003 | TE Code: AB
Applicant: ALEMBIC PHARMACEUTICALS LTD
Approved: Jun 9, 2014 | RLD: No | RS: No | Type: RX